FAERS Safety Report 8318594-2 (Version None)
Quarter: 2012Q2

REPORT INFORMATION
  Report Type: 
  Country: None (occurrence: None)
  Receive Date: 20120427
  Receipt Date: 20090805
  Transmission Date: 20120825
  Serious: No
  Sender: FDA-Public Use
  Company Number: US-TEVA-2009009280

PATIENT
  Sex: Female

DRUGS (3)
  1. FENTANYL-100 [Concomitant]
  2. FENTORA [Concomitant]
  3. NUVIGIL [Suspect]
     Route: 048

REACTIONS (1)
  - DRUG INEFFECTIVE [None]
